FAERS Safety Report 12194460 (Version 1)
Quarter: 2016Q1

REPORT INFORMATION
  Report Type: Spontaneous
  Country: US (occurrence: None)
  Receive Date: 20160318
  Receipt Date: 20160318
  Transmission Date: 20160526
  Serious: No
  Sender: FDA-Public Use
  Company Number: None

PATIENT
  Age: 62 Year
  Sex: Female

DRUGS (17)
  1. ENBREL [Suspect]
     Active Substance: ETANERCEPT
     Indication: RHEUMATOID ARTHRITIS
     Route: 058
     Dates: start: 20150812, end: 20160317
  2. LEVOTHYROXINE. [Concomitant]
     Active Substance: LEVOTHYROXINE
  3. PREDNISONE. [Concomitant]
     Active Substance: PREDNISONE
  4. ASPIRIN. [Concomitant]
     Active Substance: ASPIRIN
  5. LIPITOR [Concomitant]
     Active Substance: ATORVASTATIN CALCIUM
  6. MOTRIN [Concomitant]
     Active Substance: IBUPROFEN
  7. FLURBIPROFEN. [Concomitant]
     Active Substance: FLURBIPROFEN
  8. PRILOSEC [Concomitant]
     Active Substance: OMEPRAZOLE MAGNESIUM
  9. IMITREX [Concomitant]
     Active Substance: SUMATRIPTAN SUCCINATE
  10. NEURONTIN [Concomitant]
     Active Substance: GABAPENTIN
  11. METHOTREXATE [Concomitant]
     Active Substance: METHOTREXATE
  12. ESTRADIOL. [Concomitant]
     Active Substance: ESTRADIOL
  13. NORTRIPTYLINE [Concomitant]
     Active Substance: NORTRIPTYLINE
  14. PLAQUENIL [Concomitant]
     Active Substance: HYDROXYCHLOROQUINE SULFATE
  15. ATENOLOL. [Concomitant]
     Active Substance: ATENOLOL
  16. IBUPROFEN. [Concomitant]
     Active Substance: IBUPROFEN
  17. TRIAM/HCTZ [Concomitant]

REACTIONS (1)
  - No therapeutic response [None]

NARRATIVE: CASE EVENT DATE: 20160317
